FAERS Safety Report 23353704 (Version 1)
Quarter: 2024Q1

REPORT INFORMATION
  Report Type: Spontaneous
  Country: US (occurrence: US)
  Receive Date: 20240101
  Receipt Date: 20240101
  Transmission Date: 20240409
  Serious: No
  Sender: FDA-Public Use
  Company Number: US-PURDUE-USA-2023-0304367

PATIENT

DRUGS (2)
  1. ACETAMINOPHEN\OXYCODONE HYDROCHLORIDE [Suspect]
     Active Substance: ACETAMINOPHEN\OXYCODONE HYDROCHLORIDE
     Indication: Pain management
     Dosage: 7.5/325 MILLIGRAM
     Route: 048
  2. ACETAMINOPHEN\OXYCODONE HYDROCHLORIDE [Suspect]
     Active Substance: ACETAMINOPHEN\OXYCODONE HYDROCHLORIDE
     Dosage: (10/325 MG) 25% INCREASE TO MY PREVIOUS DOSAGE 7.5/325
     Route: 048

REACTIONS (4)
  - Drug withdrawal syndrome [Unknown]
  - Inadequate analgesia [Unknown]
  - Product quality issue [Unknown]
  - Adverse drug reaction [Unknown]
